FAERS Safety Report 13513385 (Version 1)
Quarter: 2017Q2

REPORT INFORMATION
  Report Type: Spontaneous
  Country: US (occurrence: US)
  Receive Date: 20170504
  Receipt Date: 20170504
  Transmission Date: 20170830
  Serious: No
  Sender: FDA-Public Use
  Company Number: US-GLENMARK PHARMACEUTICALS-2016GMK024754

PATIENT

DRUGS (7)
  1. TIZANIDINE. [Concomitant]
     Active Substance: TIZANIDINE
     Indication: SLEEP DISORDER
  2. VIORELE [Suspect]
     Active Substance: DESOGESTREL\ETHINYL ESTRADIOL
     Indication: HORMONE LEVEL ABNORMAL
     Dosage: 1 DF, QD
     Route: 048
     Dates: start: 20160721, end: 20160727
  3. TIZANIDINE. [Concomitant]
     Active Substance: TIZANIDINE
     Indication: PAIN
     Dosage: UNK
     Route: 065
  4. KETOPROFEN. [Concomitant]
     Active Substance: KETOPROFEN
     Indication: PAIN
     Dosage: UNK
     Route: 065
  5. TRAMADOL. [Concomitant]
     Active Substance: TRAMADOL
     Indication: PAIN
     Dosage: UNK
     Route: 065
  6. KETOROLAC [Concomitant]
     Active Substance: KETOROLAC\KETOROLAC TROMETHAMINE
     Indication: PAIN
     Dosage: UNK
     Route: 065
  7. MIRENA [Concomitant]
     Active Substance: LEVONORGESTREL
     Indication: HORMONE LEVEL ABNORMAL
     Dosage: UNK
     Route: 065

REACTIONS (8)
  - Pain [Recovered/Resolved]
  - Feeling abnormal [Recovered/Resolved]
  - Reaction to drug excipients [Unknown]
  - Abnormal behaviour [Recovered/Resolved]
  - Abdominal discomfort [Recovered/Resolved]
  - Anxiety [Recovered/Resolved]
  - Product use in unapproved indication [Unknown]
  - Mood swings [Recovered/Resolved]

NARRATIVE: CASE EVENT DATE: 20160721
